APPROVED DRUG PRODUCT: NIMODIPINE
Active Ingredient: NIMODIPINE
Strength: 6MG/ML
Dosage Form/Route: SOLUTION;ORAL
Application: A213409 | Product #001 | TE Code: AB
Applicant: ALKEM LABORATORIES LTD
Approved: Jan 22, 2025 | RLD: No | RS: No | Type: RX